FAERS Safety Report 7917933-1 (Version None)
Quarter: 2011Q4

REPORT INFORMATION
  Report Type: 
  Country: None (occurrence: None)
  Receive Date: 20111116
  Receipt Date: 20111107
  Transmission Date: 20120403
  Serious: Yes (Life-Threatening, Hospitalization, Other)
  Sender: FDA-Public Use
  Company Number: US-BAYER-2011-045450

PATIENT
  Age: 26 Year
  Sex: Female

DRUGS (4)
  1. YAZ [Suspect]
     Indication: CONTRACEPTION
     Dosage: UNK
     Dates: start: 20060709, end: 20061002
  2. ATENOLOL [Concomitant]
     Dosage: 100 MG, BID
     Route: 048
  3. SPIRONOLACTONE [Concomitant]
     Dosage: 25 MG, QD
     Route: 048
  4. YASMIN [Suspect]
     Indication: CONTRACEPTION
     Dosage: UNK
     Dates: start: 20020101, end: 20030101

REACTIONS (8)
  - PAIN [None]
  - CHOLECYSTITIS CHRONIC [None]
  - FEAR [None]
  - BILIARY DYSKINESIA [None]
  - BACK PAIN [None]
  - ABDOMINAL PAIN [None]
  - ANHEDONIA [None]
  - ANXIETY [None]
